FAERS Safety Report 5593562-2 (Version None)
Quarter: 2008Q1

REPORT INFORMATION
  Report Type: 
  Country: None (occurrence: None)
  Receive Date: 20080116
  Receipt Date: 20080109
  Transmission Date: 20080703
  Serious: Yes (Life-Threatening, Hospitalization)
  Sender: FDA-Public Use
  Company Number: DE-BRISTOL-MYERS SQUIBB COMPANY-14019681

PATIENT
  Age: 52 Year
  Sex: Female
  Weight: 72 kg

DRUGS (1)
  1. SPRYCEL [Suspect]
     Indication: CHRONIC MYELOID LEUKAEMIA

REACTIONS (1)
  - PULMONARY EMBOLISM [None]
